FAERS Safety Report 5913923-9 (Version None)
Quarter: 2008Q4

REPORT INFORMATION
  Report Type: 
  Country: None (occurrence: None)
  Receive Date: 20081009
  Receipt Date: 20081003
  Transmission Date: 20090506
  Serious: Yes (Other)
  Sender: FDA-Public Use
  Company Number: B0540757A

PATIENT
  Age: 71 Year
  Sex: Male

DRUGS (9)
  1. LANOXIN [Suspect]
     Indication: ARRHYTHMIA
     Dosage: .25MG PER DAY
     Route: 048
  2. HYDROCHLOROTHIAZIDE [Concomitant]
     Dosage: 25MG PER DAY
  3. METOPROLOL TARTRATE [Concomitant]
     Dosage: 200MG PER DAY
     Route: 048
  4. CRESTOR [Concomitant]
     Dosage: 40MG PER DAY
     Route: 048
  5. ADALAT [Concomitant]
     Dosage: 60MG PER DAY
     Route: 048
  6. CARDURA [Concomitant]
     Dosage: 4MG PER DAY
     Route: 048
  7. CAPTOPRIL [Concomitant]
     Dosage: 50MG THREE TIMES PER DAY
     Route: 048
  8. ACENOCOUMAROL [Concomitant]
     Route: 048
  9. TAMSULOSINE [Concomitant]
     Dosage: .4MG PER DAY
     Route: 048

REACTIONS (3)
  - DIPLOPIA [None]
  - DIZZINESS [None]
  - SYNCOPE [None]
